FAERS Safety Report 17562245 (Version 2)
Quarter: 2020Q2

REPORT INFORMATION
  Report Type: Spontaneous
  Country: US (occurrence: US)
  Receive Date: 20200319
  Receipt Date: 20200406
  Transmission Date: 20200713
  Serious: Yes (Other)
  Sender: FDA-Public Use
  Company Number: US-AMERICAN REGENT INC-2020000658

PATIENT
  Age: 7 Year
  Sex: Male
  Weight: 17.8 kg

DRUGS (21)
  1. DIASTAT ACUDIAL [Concomitant]
     Active Substance: DIAZEPAM
     Indication: SEIZURE
     Dosage: 10 MG EVERY 6 HOURS AS NEEDED FOR SEIZURE }3MINS.
     Route: 054
  2. NOVOLOG [Concomitant]
     Active Substance: INSULIN ASPART
     Indication: TYPE 1 DIABETES MELLITUS
     Dosage: BEFORE MEALS AND BEDTIME AS NEEDED, UP TO 35 UNITS PER DAY VIA INSULIN PUMP
     Route: 058
  3. VITAMIN D                          /00318501/ [Concomitant]
     Active Substance: CHOLECALCIFEROL
     Indication: PRODUCT USED FOR UNKNOWN INDICATION
     Dosage: 1 TAB VIA PEG TUBE ONCE DAILY
  4. KEPPRA [Concomitant]
     Active Substance: LEVETIRACETAM
     Indication: PRODUCT USED FOR UNKNOWN INDICATION
     Dosage: 4 ML (400MG) IN AM; 4 ML IN AFTERNOON AND 5 ML (500MG) AT NIGHT VIA GT TUBE
  5. TAURINE [Concomitant]
     Active Substance: TAURINE
     Indication: PRODUCT USED FOR UNKNOWN INDICATION
     Dosage: 5 ML INTO PEG TUBE ONCE DAILY
  6. INJECTAFER [Suspect]
     Active Substance: FERRIC CARBOXYMALTOSE
     Indication: IRON DEFICIENCY ANAEMIA
     Dosage: 15 MG/KG X1
     Route: 042
     Dates: start: 20200227, end: 20200227
  7. LIORESAL [Concomitant]
     Active Substance: BACLOFEN
     Indication: PRODUCT USED FOR UNKNOWN INDICATION
     Dosage: 1/2 TABLET (5MG) IN AM, 1/4 TABLET (2.5 MG) IN AFTERNOON AND 1/2 TAB IN PM
  8. KLONOPIN [Concomitant]
     Active Substance: CLONAZEPAM
     Indication: PRODUCT USED FOR UNKNOWN INDICATION
     Dosage: TWICE DAILY VIA G-TUBE
  9. CATAPRES                           /00171101/ [Concomitant]
     Active Substance: CLONIDINE
     Indication: PRODUCT USED FOR UNKNOWN INDICATION
     Dosage: 0.3 ML VIA GT TUBE BID
  10. PREVACID [Concomitant]
     Active Substance: LANSOPRAZOLE
     Indication: PRODUCT USED FOR UNKNOWN INDICATION
     Dosage: 5 ML INTO PEG TUBE TWICE DAILY 30 MINUTES BEFORE MEALS
  11. DOCUSATE SODIUM. [Concomitant]
     Active Substance: DOCUSATE SODIUM
     Indication: CONSTIPATION
     Dosage: TWICE DAILY AS NEEDED
     Route: 054
  12. CALMOSEPTINE [Concomitant]
     Active Substance: MENTHOL\ZINC OXIDE
     Indication: DERMATITIS DIAPER
     Dosage: APPLY TO AFFECTED AREA 4 TIMES DAILY AS NEEDED FOR DIAPER RASH/DERMATITIS
     Route: 061
  13. MIRALAX [Concomitant]
     Active Substance: POLYETHYLENE GLYCOL 3350
     Indication: PRODUCT USED FOR UNKNOWN INDICATION
     Dosage: 2 TSP FULL INTO PEG TUBE ONCE DAILY BASED ON BOWEL MOVEMENT
  14. ALBUTEROL                          /00139501/ [Concomitant]
     Active Substance: ALBUTEROL
     Indication: DYSPNOEA
     Dosage: 3 MILLILITER, EVERY 4 HOURS AS NEEDED
  15. ROBINUL [Concomitant]
     Active Substance: GLYCOPYRROLATE
     Indication: PRODUCT USED FOR UNKNOWN INDICATION
     Dosage: 1 TAB INTO PEG TUBE BID
     Route: 048
  16. GLUCAGON EMERGENCY KIT [Concomitant]
     Active Substance: GLUCAGON
     Indication: BLOOD GLUCOSE DECREASED
     Dosage: USE AS DIRECTED
  17. INSULIN LISPRO [Concomitant]
     Active Substance: INSULIN LISPRO
     Indication: TYPE 1 DIABETES MELLITUS
     Dosage: INJECT PER PUMP BEFORE MEALS AND BEDTIME AS NEEDED, INJECT UP TO 21 UNITS PER DAY
     Route: 058
  18. MULTIVITAMIN AND MINERAL SUPPLEMENT [Concomitant]
     Active Substance: MINERALS\VITAMINS
     Indication: PRODUCT USED FOR UNKNOWN INDICATION
     Dosage: PLACE 1/2 TAB INTO THE PEG TUBE TWICE DAILY
  19. SABRIL [Concomitant]
     Active Substance: VIGABATRIN
     Indication: PRODUCT USED FOR UNKNOWN INDICATION
     Dosage: 23 ML BY MOUTH EVERY 12 HOURS
     Route: 048
  20. VALIUM [Concomitant]
     Active Substance: DIAZEPAM
     Indication: PRODUCT USED FOR UNKNOWN INDICATION
     Dosage: 1 ML VIA GT TUBE BID
  21. FERINSOL [Concomitant]
     Indication: IRON DEFICIENCY ANAEMIA
     Dosage: 3.333 MILLILITER, ONCE DAILY
     Route: 048

REACTIONS (3)
  - Product use issue [Unknown]
  - Hypoglycaemia [Recovered/Resolved]
  - Decreased insulin requirement [Recovered/Resolved]

NARRATIVE: CASE EVENT DATE: 20200228
